FAERS Safety Report 16527658 (Version 1)
Quarter: 2019Q3

REPORT INFORMATION
  Report Type: Spontaneous
  Country: DE (occurrence: DE)
  Receive Date: 20190703
  Receipt Date: 20190703
  Transmission Date: 20191004
  Serious: Yes (Disabling)
  Sender: FDA-Public Use
  Company Number: DE-MYLANLABS-2019M1060998

PATIENT
  Age: 80 Year
  Sex: Female

DRUGS (10)
  1. VINCRISTINE [Suspect]
     Active Substance: VINCRISTINE
     Indication: B-CELL LYMPHOMA
     Dosage: 3.4 MILLIGRAM, Q2W (1 TIME IN 14 DAYS FOR 1 DAY)
     Route: 042
     Dates: start: 20150507, end: 20150507
  2. RITUXIMAB. [Suspect]
     Active Substance: RITUXIMAB
     Indication: B-CELL LYMPHOMA
     Dosage: 650 MILLIGRAM, Q2W (1 TIME IN 14 DAYS FOR 1 DAY)
     Route: 042
     Dates: start: 20150708, end: 20150708
  3. DOXORUBICIN [Suspect]
     Active Substance: DOXORUBICIN
     Indication: B-CELL LYMPHOMA
     Dosage: 85 MILLIGRAM, Q2W (1 TIME IN 14 DAYS FOR 1 DAY)
     Route: 042
     Dates: start: 20150507, end: 20150507
  4. PEGFILGRASTIM [Suspect]
     Active Substance: PEGFILGRASTIM
     Indication: B-CELL LYMPHOMA
     Dosage: 6 MILLIGRAM, Q2W ((1 TIME IN 2 WEEK (S) FOR 1 DAY (S))
     Route: 058
     Dates: start: 20150509, end: 20150509
  5. BISOPROLOL HEMIFUMARATE [Concomitant]
     Active Substance: BISOPROLOL FUMARATE
     Indication: HYPERTENSION
     Dosage: 1 UNK, QD (5/25 MG, QD (1-0-0))
     Route: 048
     Dates: start: 20150325
  6. RIVAROXABAN [Concomitant]
     Active Substance: RIVAROXABAN
     Indication: PULMONARY EMBOLISM
     Dosage: 20 MILLIGRAM, QD (1 TIME A DAY)
     Route: 048
     Dates: start: 20150529
  7. PREDNISOLONE. [Suspect]
     Active Substance: PREDNISOLONE
     Indication: B-CELL LYMPHOMA
     Dosage: 1 UNK, QD (^5 TAGE^, QD (1-0-0, EVERY 14 DAYS FOR 5 DAYS))
     Route: 048
     Dates: start: 20150507, end: 20150511
  8. PANTOPRAZOLE SODIUM. [Concomitant]
     Active Substance: PANTOPRAZOLE SODIUM
     Indication: PROPHYLAXIS
     Dosage: 40 MILLIGRAM, QD(1 TIME A DAY)
     Route: 048
     Dates: start: 20150325
  9. MOLSIDOMINE [Concomitant]
     Active Substance: MOLSIDOMINE
     Indication: ANTIANGIOGENIC THERAPY
     Dosage: 4 MILLIGRAM, QD (1 TIME A DAY)
     Route: 048
     Dates: start: 20150325
  10. CYCLOPHOSPHAMIDE. [Suspect]
     Active Substance: CYCLOPHOSPHAMIDE
     Indication: B-CELL LYMPHOMA
     Dosage: 1280 MILLIGRAM, Q2W (1 TIME IN 14 DAYS FOR 1 DAY)
     Route: 042
     Dates: start: 20150507, end: 20150507

REACTIONS (1)
  - Peripheral sensory neuropathy [Recovered/Resolved]

NARRATIVE: CASE EVENT DATE: 20150714
